FAERS Safety Report 7226001-6 (Version None)
Quarter: 2011Q1

REPORT INFORMATION
  Report Type: 
  Country: None (occurrence: None)
  Receive Date: 20110113
  Receipt Date: 20110107
  Transmission Date: 20110831
  Serious: Yes (Other)
  Sender: FDA-Public Use
  Company Number: ES-PFIZER INC-2011005335

PATIENT
  Age: 71 Year
  Sex: Male

DRUGS (1)
  1. TOVIAZ [Suspect]
     Indication: URINARY INCONTINENCE
     Dosage: 8 MG, UNK

REACTIONS (2)
  - DRY MOUTH [None]
  - PROSTATIC OPERATION [None]
